FAERS Safety Report 4325714-3 (Version None)
Quarter: 2004Q1

REPORT INFORMATION
  Report Type: 
  Country: None (occurrence: None)
  Receive Date: 20040324
  Receipt Date: 20040309
  Transmission Date: 20041129
  Serious: Yes (Other)
  Sender: FDA-Public Use
  Company Number: USA040361389

PATIENT
  Age: 76 Year
  Sex: Female
  Weight: 64 kg

DRUGS (4)
  1. FORTEO [Suspect]
     Indication: BONE DISORDER
     Dosage: 20 UG/1 DAY
     Dates: start: 20030501
  2. REMICADE [Concomitant]
  3. MEDROL [Concomitant]
  4. PLAQUENIL [Concomitant]

REACTIONS (5)
  - ERYTHEMA [None]
  - HYPERAESTHESIA [None]
  - PERONEAL NERVE PALSY [None]
  - PHARMACEUTICAL PRODUCT COMPLAINT [None]
  - SKIN IRRITATION [None]
